FAERS Safety Report 10182116 (Version 3)
Quarter: 2014Q2

REPORT INFORMATION
  Report Type: Report from Study
  Country: ES (occurrence: ES)
  Receive Date: 20140520
  Receipt Date: 20140602
  Transmission Date: 20141212
  Serious: Yes (Hospitalization)
  Sender: FDA-Public Use
  Company Number: ES-AMGEN INC.-ESPCT2014035574

PATIENT
  Age: 68 Year
  Sex: Male
  Weight: 66.7 kg

DRUGS (2)
  1. PANITUMUMAB [Suspect]
     Indication: HEAD AND NECK CANCER
     Dosage: 468 MG, Q2WK
     Route: 042
     Dates: start: 20140319
  2. PACLITAXEL [Concomitant]
     Indication: HEAD AND NECK CANCER
     Dosage: 152 MG, QWK
     Route: 042
     Dates: start: 20140319

REACTIONS (3)
  - Neutropenia [Not Recovered/Not Resolved]
  - Skin ulcer [Not Recovered/Not Resolved]
  - Dyspnoea [Unknown]
